FAERS Safety Report 5910298-6 (Version None)
Quarter: 2008Q4

REPORT INFORMATION
  Report Type: 
  Country: None (occurrence: None)
  Receive Date: 20081007
  Receipt Date: 20080929
  Transmission Date: 20090506
  Serious: Yes (Hospitalization)
  Sender: FDA-Public Use
  Company Number: US-ASTRAZENECA-2008UW20597

PATIENT
  Age: 29771 Day
  Sex: Female

DRUGS (2)
  1. IRESSA [Suspect]
     Indication: HEAD AND NECK CANCER
     Route: 048
     Dates: start: 20080304, end: 20080401
  2. IRESSA [Suspect]
     Route: 048
     Dates: start: 20080402

REACTIONS (1)
  - SOFT TISSUE INFECTION [None]
